FAERS Safety Report 5749668-8 (Version None)
Quarter: 2008Q2

REPORT INFORMATION
  Report Type: 
  Country: None (occurrence: None)
  Receive Date: 20080527
  Receipt Date: 20080514
  Transmission Date: 20081010
  Serious: Yes (Hospitalization, Other)
  Sender: FDA-Public Use
  Company Number: JP-MERCK-0804USA02068

PATIENT
  Age: 76 Year
  Sex: Female

DRUGS (11)
  1. FOSAMAX [Suspect]
     Indication: OSTEOPOROSIS
     Route: 048
     Dates: start: 20030910, end: 20070227
  2. FOSAMAX [Suspect]
     Route: 048
     Dates: start: 20070303
  3. FOSAMAX [Suspect]
     Route: 048
     Dates: start: 20020320, end: 20020403
  4. KETOPROFEN [Concomitant]
     Route: 061
     Dates: start: 20030108
  5. CALCIUM LACTATE [Concomitant]
     Indication: OSTEOPOROSIS
     Route: 048
     Dates: start: 19980325, end: 20030108
  6. ROCALTROL [Concomitant]
     Indication: OSTEOPOROSIS
     Route: 048
     Dates: start: 19980325, end: 20030618
  7. ACTONEL [Concomitant]
     Indication: OSTEOPOROSIS
     Route: 048
     Dates: start: 20030618, end: 20030910
  8. CAMPHOR AND MENTHOL AND METHYL SALICYLATE [Concomitant]
     Indication: OSTEOARTHRITIS
     Route: 061
     Dates: start: 19980325, end: 19991006
  9. LOXONIN [Concomitant]
     Indication: EXCORIATION
     Route: 048
     Dates: start: 20041107, end: 20041108
  10. SELBEX [Concomitant]
     Indication: EXCORIATION
     Route: 048
     Dates: start: 20041107, end: 20041108
  11. FLOMOX [Concomitant]
     Indication: EXCORIATION
     Route: 048
     Dates: start: 20041106, end: 20041110

REACTIONS (2)
  - FALL [None]
  - FEMUR FRACTURE [None]
